FAERS Safety Report 7338208-8 (Version None)
Quarter: 2011Q1

REPORT INFORMATION
  Report Type: 
  Country: None (occurrence: None)
  Receive Date: 20110303
  Receipt Date: 20110303
  Transmission Date: 20110831
  Serious: Yes (Hospitalization)
  Sender: FDA-Public Use
  Company Number: None

PATIENT
  Sex: Female
  Weight: 78.0187 kg

DRUGS (1)
  1. PLAQUENIL [Suspect]
     Dosage: 200 MG BID PO
     Route: 048
     Dates: start: 20110113, end: 20110202

REACTIONS (1)
  - STEVENS-JOHNSON SYNDROME [None]
